FAERS Safety Report 15451987 (Version 1)
Quarter: 2018Q4

REPORT INFORMATION
  Report Type: Spontaneous
  Country: CA (occurrence: CA)
  Receive Date: 20181001
  Receipt Date: 20181001
  Transmission Date: 20190204
  Serious: Yes (Other)
  Sender: FDA-Public Use
  Company Number: CA-PFIZER INC-2018392251

PATIENT
  Age: 6 Year
  Sex: Male
  Weight: 24.94 kg

DRUGS (1)
  1. CHILDRENS ADVIL [Suspect]
     Active Substance: IBUPROFEN
     Indication: PYREXIA
     Dosage: 12.5 ML, 4X/DAY(1 EVERY 6 HOURS)
     Route: 048

REACTIONS (5)
  - Neck pain [Unknown]
  - Hallucination [Unknown]
  - Pain in extremity [Unknown]
  - Pyrexia [Unknown]
  - Headache [Unknown]
